FAERS Safety Report 21835470 (Version 1)
Quarter: 2023Q1

REPORT INFORMATION
  Report Type: Spontaneous
  Country: US (occurrence: US)
  Receive Date: 20230109
  Receipt Date: 20230109
  Transmission Date: 20230418
  Serious: No
  Sender: FDA-Public Use
  Company Number: US-TERSERA THERAPEUTICS LLC-2022TRS001578

PATIENT

DRUGS (2)
  1. PRIALT [Suspect]
     Active Substance: ZICONOTIDE ACETATE
     Indication: Pain
     Dosage: UNK
     Route: 037
     Dates: start: 20220317, end: 20220404
  2. PRIALT [Suspect]
     Active Substance: ZICONOTIDE ACETATE
     Dosage: DOSE DECREASED
     Route: 037
     Dates: start: 20220406

REACTIONS (7)
  - Dyspnoea [Unknown]
  - Feeling abnormal [Unknown]
  - Pain [Unknown]
  - Ill-defined disorder [Unknown]
  - Lethargy [Unknown]
  - Abdominal discomfort [Unknown]
  - Dysuria [Unknown]
